FAERS Safety Report 6056750-7 (Version None)
Quarter: 2009Q1

REPORT INFORMATION
  Report Type: 
  Country: None (occurrence: None)
  Receive Date: 20090129
  Receipt Date: 20090122
  Transmission Date: 20090719
  Serious: Yes (Other)
  Sender: FDA-Public Use
  Company Number: US-BIOGENIDEC-2009BI002494

PATIENT
  Age: 47 Year
  Sex: Female

DRUGS (1)
  1. AVONEX [Suspect]
     Indication: MULTIPLE SCLEROSIS
     Route: 030
     Dates: start: 20000511

REACTIONS (6)
  - DIZZINESS [None]
  - FALL [None]
  - MEMORY IMPAIRMENT [None]
  - NEOPLASM [None]
  - VERTIGO [None]
  - WEIGHT INCREASED [None]
